FAERS Safety Report 23591201 (Version 1)
Quarter: 2024Q1

REPORT INFORMATION
  Report Type: Spontaneous
  Country: GB (occurrence: GB)
  Receive Date: 20240304
  Receipt Date: 20240304
  Transmission Date: 20240410
  Serious: Yes (Other)
  Sender: FDA-Public Use
  Company Number: GB-CELLTRION INC.-2024GB005039

PATIENT

DRUGS (1)
  1. INFLIXIMAB [Suspect]
     Active Substance: INFLIXIMAB
     Indication: Crohn^s disease
     Dosage: 120MG FORTNIGHTLY
     Route: 058

REACTIONS (2)
  - Oesophageal stenosis [Not Recovered/Not Resolved]
  - Oesophageal candidiasis [Not Recovered/Not Resolved]

NARRATIVE: CASE EVENT DATE: 20240222
